FAERS Safety Report 9645944 (Version 1)
Quarter: 2013Q4

REPORT INFORMATION
  Report Type: Spontaneous
  Country: US (occurrence: None)
  Receive Date: 20131024
  Receipt Date: 20131024
  Transmission Date: 20140711
  Serious: No
  Sender: FDA-Public Use
  Company Number: None

PATIENT
  Age: 77 Year
  Sex: Female
  Weight: 63.96 kg

DRUGS (16)
  1. CYMBALTA [Suspect]
     Indication: DEPRESSION
     Route: 048
     Dates: start: 20130927, end: 20131007
  2. CYMBALTA [Suspect]
     Indication: ARTHRALGIA
     Route: 048
     Dates: start: 20130927, end: 20131007
  3. WARFARIN [Concomitant]
  4. RANITIDINE [Concomitant]
  5. METOPROLOL [Concomitant]
  6. FENOFIBRATE [Concomitant]
  7. GABAPENTIN [Concomitant]
  8. LISINOPRIL [Concomitant]
  9. M+N [Concomitant]
  10. TRIMETHOPRIM [Concomitant]
  11. TRAMADOL [Concomitant]
  12. HYDROCO/ACETAMINE [Concomitant]
  13. BIOTIN [Concomitant]
  14. D3 [Concomitant]
  15. CHLOR TABS [Concomitant]
  16. MUCINEX [Concomitant]

REACTIONS (9)
  - Muscular weakness [None]
  - Gait disturbance [None]
  - Balance disorder [None]
  - Nausea [None]
  - Insomnia [None]
  - Hyperhidrosis [None]
  - Decreased appetite [None]
  - Weight decreased [None]
  - Diarrhoea [None]
